FAERS Safety Report 5125164-6 (Version None)
Quarter: 2006Q4

REPORT INFORMATION
  Report Type: 
  Country: None (occurrence: None)
  Receive Date: 20061006
  Receipt Date: 20060926
  Transmission Date: 20070319
  Serious: Yes (Other)
  Sender: FDA-Public Use
  Company Number: 2006117658

PATIENT
  Age: 39 Year
  Sex: Female

DRUGS (1)
  1. ZOLOFT [Suspect]
     Indication: DEPRESSION
     Dosage: 25 AND 50 MG
     Dates: start: 20060801

REACTIONS (4)
  - ANXIETY [None]
  - DYSGEUSIA [None]
  - GASTRITIS [None]
  - MOUTH HAEMORRHAGE [None]
